FAERS Safety Report 9473096 (Version 1)
Quarter: 2013Q3

REPORT INFORMATION
  Report Type: Report from Study
  Country: US (occurrence: US)
  Receive Date: 20130823
  Receipt Date: 20130823
  Transmission Date: 20140515
  Serious: Yes (Hospitalization, Other)
  Sender: FDA-Public Use
  Company Number: US-ABBOTT-13P-163-1133902-00

PATIENT
  Age: 39 Year
  Sex: Female

DRUGS (11)
  1. HUMIRA [Suspect]
     Indication: CROHN^S DISEASE
  2. HUMIRA [Suspect]
     Dates: start: 20130808
  3. AZITHIOPRINE [Concomitant]
     Indication: PRODUCT USED FOR UNKNOWN INDICATION
  4. IMURAN [Concomitant]
     Indication: PRODUCT USED FOR UNKNOWN INDICATION
  5. IMURAN [Concomitant]
  6. CYMBALTA [Concomitant]
     Indication: ANTIDEPRESSANT THERAPY
  7. CYMBALTA [Concomitant]
     Indication: MUSCULOSKELETAL PAIN
  8. XANAX [Concomitant]
     Indication: ANXIETY
  9. PRILOSEC [Concomitant]
     Indication: GASTRIC DISORDER
  10. SOMA [Concomitant]
     Indication: MUSCLE RELAXANT THERAPY
  11. VITAMIN B-12 INJECTIONS [Concomitant]
     Indication: PERNICIOUS ANAEMIA

REACTIONS (23)
  - Joint dislocation [Unknown]
  - Road traffic accident [Not Recovered/Not Resolved]
  - Prolonged labour [Unknown]
  - Fibromyalgia [Unknown]
  - Intervertebral disc degeneration [Unknown]
  - Anxiety [Unknown]
  - Arthritis [Unknown]
  - Upper limb fracture [Unknown]
  - Loss of consciousness [Unknown]
  - Fall [Unknown]
  - Head injury [Unknown]
  - Hip fracture [Unknown]
  - Rib fracture [Unknown]
  - Pneumothorax traumatic [Unknown]
  - Pelvic fracture [Unknown]
  - Ankle fracture [Unknown]
  - Memory impairment [Unknown]
  - Hip arthroplasty [Unknown]
  - Crohn^s disease [Unknown]
  - Nasopharyngitis [Unknown]
  - Cough [Unknown]
  - Injection site pain [Unknown]
  - Pernicious anaemia [Unknown]
